FAERS Safety Report 16278472 (Version 1)
Quarter: 2019Q2

REPORT INFORMATION
  Report Type: Spontaneous
  Country: US (occurrence: US)
  Receive Date: 20190506
  Receipt Date: 20190506
  Transmission Date: 20190711
  Serious: No
  Sender: FDA-Public Use
  Company Number: US-BAUSCH-BL-2019-011711

PATIENT
  Age: 78 Year
  Sex: Male
  Weight: 94.43 kg

DRUGS (4)
  1. LEVOTHYROXINE. [Concomitant]
     Active Substance: LEVOTHYROXINE
     Indication: PRODUCT USED FOR UNKNOWN INDICATION
  2. ATORVASTATIN [Concomitant]
     Active Substance: ATORVASTATIN
     Indication: PRODUCT USED FOR UNKNOWN INDICATION
  3. LOTEMAX [Suspect]
     Active Substance: LOTEPREDNOL ETABONATE
     Indication: POSTOPERATIVE CARE
     Dosage: 3 TO 4 WEEKS AGO, ONCE DAILY IN BOTH EYES
     Route: 047
     Dates: start: 2019
  4. METHYLPHENIDATE. [Concomitant]
     Active Substance: METHYLPHENIDATE
     Indication: PRODUCT USED FOR UNKNOWN INDICATION

REACTIONS (5)
  - Skin burning sensation [Recovered/Resolved]
  - Eye pain [Recovered/Resolved]
  - Foreign body sensation in eyes [Recovered/Resolved]
  - Vision blurred [Recovered/Resolved]
  - Skin tightness [Recovered/Resolved]

NARRATIVE: CASE EVENT DATE: 2019
